FAERS Safety Report 25124262 (Version 8)
Quarter: 2025Q3

REPORT INFORMATION
  Report Type: Report from Study
  Country: EU (occurrence: EU)
  Receive Date: 20250326
  Receipt Date: 20250831
  Transmission Date: 20251020
  Serious: Yes (Hospitalization)
  Sender: ABBVIE
  Company Number: EU-ABBVIE-6189017

PATIENT
  Age: 69 Year
  Sex: Male
  Weight: 112 kg

DRUGS (11)
  1. CARBIDOPA\LEVODOPA [Suspect]
     Active Substance: CARBIDOPA\LEVODOPA
     Indication: Parkinson^s disease
     Route: 050
  2. CARBIDOPA\LEVODOPA [Suspect]
     Active Substance: CARBIDOPA\LEVODOPA
     Route: 050
     Dates: start: 20240521
  3. CARBIDOPA\LEVODOPA [Suspect]
     Active Substance: CARBIDOPA\LEVODOPA
     Route: 050
     Dates: start: 20250312
  4. CARBIDOPA\LEVODOPA [Suspect]
     Active Substance: CARBIDOPA\LEVODOPA
     Route: 050
  5. CARBIDOPA\LEVODOPA [Suspect]
     Active Substance: CARBIDOPA\LEVODOPA
     Route: 050
  6. CARBIDOPA\LEVODOPA [Suspect]
     Active Substance: CARBIDOPA\LEVODOPA
     Route: 050
     Dates: end: 20250704
  7. GLUCOPHAGE [Concomitant]
     Active Substance: METFORMIN HYDROCHLORIDE
     Indication: Product used for unknown indication
     Route: 048
  8. COLCHICINE [Concomitant]
     Active Substance: COLCHICINE
     Indication: Product used for unknown indication
     Route: 048
  9. Nitroglicerina/acarpia [Concomitant]
     Indication: Product used for unknown indication
     Route: 048
  10. CLONAZEPAM [Concomitant]
     Active Substance: CLONAZEPAM
     Indication: Product used for unknown indication
     Dosage: UNIT DOSE: 0.5 MG?FORM STRENGTH: 2 MILLIGRAM
     Route: 048
  11. Peptan [Concomitant]
     Indication: Gastrointestinal disorder prophylaxis
     Route: 048
     Dates: start: 202503

REACTIONS (13)
  - Demyelinating polyneuropathy [Not Recovered/Not Resolved]
  - Stoma site discharge [Unknown]
  - Stoma site reaction [Not Recovered/Not Resolved]
  - Burning sensation [Unknown]
  - Balance disorder [Unknown]
  - Stoma site irritation [Unknown]
  - Stoma site infection [Not Recovered/Not Resolved]
  - Hallucination, visual [Unknown]
  - Blood homocysteine increased [Unknown]
  - Paraesthesia [Unknown]
  - Stoma site erythema [Unknown]
  - Gait disturbance [Unknown]
  - Constipation [Unknown]

NARRATIVE: CASE EVENT DATE: 20250101
